FAERS Safety Report 4592813-0 (Version None)
Quarter: 2005Q1

REPORT INFORMATION
  Report Type: 
  Country: None (occurrence: None)
  Receive Date: 20050228
  Receipt Date: 20050104
  Transmission Date: 20050727
  Serious: Yes (Hospitalization, Other)
  Sender: FDA-Public Use
  Company Number: US-BRISTOL-MYERS SQUIBB COMPANY-12813481

PATIENT
  Age: 20 Year
  Sex: Female
  Weight: 116 kg

DRUGS (3)
  1. ABILIFY [Suspect]
     Indication: SCHIZOPHRENIA
     Route: 048
     Dates: start: 20041227, end: 20041230
  2. HALDOL [Concomitant]
     Dates: start: 20040501
  3. COGENTIN [Concomitant]
     Dates: start: 20041201

REACTIONS (9)
  - ANOREXIA [None]
  - ASTHENIA [None]
  - BLOOD GLUCOSE INCREASED [None]
  - COMA [None]
  - LETHARGY [None]
  - POLLAKIURIA [None]
  - PYREXIA [None]
  - THIRST [None]
  - URINE OUTPUT INCREASED [None]
